FAERS Safety Report 25229455 (Version 1)
Quarter: 2025Q2

REPORT INFORMATION
  Report Type: Spontaneous
  Country: RU (occurrence: RU)
  Receive Date: 20250423
  Receipt Date: 20250423
  Transmission Date: 20250717
  Serious: Yes (Other)
  Sender: RANBAXY
  Company Number: RU-SUN PHARMACEUTICAL INDUSTRIES LTD-2025R1-503749

PATIENT
  Age: 30 Year
  Sex: Female
  Weight: 116 kg

DRUGS (5)
  1. ESOMEPRAZOLE [Suspect]
     Active Substance: ESOMEPRAZOLE
     Indication: Liver disorder
     Dosage: 20 MILLIGRAM, BID
     Route: 065
  2. MEBEVERINE [Suspect]
     Active Substance: MEBEVERINE
     Indication: Liver disorder
     Dosage: 200 MILLIGRAM, BID
     Route: 065
  3. URSODIOL [Suspect]
     Active Substance: URSODIOL
     Indication: Liver disorder
     Dosage: 500 MILLIGRAM, TID
     Route: 065
  4. CREON [Suspect]
     Active Substance: PANCRELIPASE AMYLASE\PANCRELIPASE LIPASE\PANCRELIPASE PROTEASE
     Indication: Liver disorder
     Dosage: 10,000 IU, TID
     Route: 065
  5. URSODIOL [Suspect]
     Active Substance: URSODIOL
     Indication: Liver disorder

REACTIONS (2)
  - Drug ineffective [Unknown]
  - Disease progression [Unknown]
